FAERS Safety Report 7216335-3 (Version None)
Quarter: 2011Q1

REPORT INFORMATION
  Report Type: 
  Country: None (occurrence: None)
  Receive Date: 20110107
  Receipt Date: 20110103
  Transmission Date: 20110831
  Serious: Yes (Other)
  Sender: FDA-Public Use
  Company Number: US-JNJFOC-20100907349

PATIENT
  Sex: Female

DRUGS (6)
  1. LEVAQUIN [Suspect]
     Route: 048
  2. LEVAQUIN [Suspect]
     Indication: NASAL CONGESTION
     Route: 048
  3. LEVAQUIN [Suspect]
     Route: 048
  4. LEVAQUIN [Suspect]
     Route: 048
  5. LEVAQUIN [Suspect]
     Indication: NASOPHARYNGITIS
     Route: 048
  6. LEVAQUIN [Suspect]
     Route: 048

REACTIONS (8)
  - ARTHROFIBROSIS [None]
  - INJURY [None]
  - MUSCULOSKELETAL STIFFNESS [None]
  - PAIN [None]
  - MUSCLE ATROPHY [None]
  - SYNOVITIS [None]
  - LIGAMENT RUPTURE [None]
  - MENISCUS LESION [None]
